FAERS Safety Report 10997438 (Version 1)
Quarter: 2015Q2

REPORT INFORMATION
  Report Type: Spontaneous
  Country: US (occurrence: US)
  Receive Date: 20150408
  Receipt Date: 20150408
  Transmission Date: 20150821
  Serious: No
  Sender: FDA-Public Use
  Company Number: US-BANPHARM-20142759

PATIENT
  Age: 78 Year
  Sex: Male
  Weight: 68.04 kg

DRUGS (5)
  1. ALEVE [Suspect]
     Active Substance: NAPROXEN SODIUM
     Route: 048
     Dates: start: 2013, end: 20140530
  2. BAYER ENTERTIC ASPIRIN [Concomitant]
     Dosage: 81 MG,
  3. PROBIOTIC [Concomitant]
     Active Substance: PROBIOTICS NOS
  4. LISINIPRIL [Concomitant]
  5. LIPITOR [Concomitant]
     Active Substance: ATORVASTATIN CALCIUM

REACTIONS (2)
  - Drug ineffective [Unknown]
  - Incorrect dose administered [Unknown]

NARRATIVE: CASE EVENT DATE: 201405
